FAERS Safety Report 8085966 (Version 3)
Quarter: 2016Q1

REPORT INFORMATION
  Report Type: Report from Study
  Country: IT (occurrence: IT)
  Receive Date: 20110811
  Receipt Date: 20160303
  Transmission Date: 20160526
  Serious: Yes (Other)
  Sender: FDA-Public Use
  Company Number: IT-ROCHE-793416

PATIENT
  Age: 14 Year
  Sex: Female

DRUGS (4)
  1. PEGINTERFERON ALFA-2B [Concomitant]
     Active Substance: PEGINTERFERON ALFA-2B
     Indication: RENAL CELL CARCINOMA
     Route: 058
  2. BEVACIZUMAB [Suspect]
     Active Substance: BEVACIZUMAB
     Indication: METASTATIC RENAL CELL CARCINOMA
     Route: 042
  3. SUNITINIB [Suspect]
     Active Substance: SUNITINIB
     Indication: METASTATIC RENAL CELL CARCINOMA
     Dosage: FOR 4 WEEKS WITH A 2-WEEK REST PERIOD?TEMPORARILY WITHHELD
     Route: 048
  4. SUNITINIB [Suspect]
     Active Substance: SUNITINIB
     Route: 048

REACTIONS (3)
  - Proteinuria [Unknown]
  - Hypothyroidism [Unknown]
  - Hypertension [Recovered/Resolved]
